FAERS Safety Report 8667643 (Version 2)
Quarter: 2013Q4

REPORT INFORMATION
  Report Type: Spontaneous
  Country: US (occurrence: US)
  Receive Date: 20120717
  Receipt Date: 20131101
  Transmission Date: 20140711
  Serious: No
  Sender: FDA-Public Use
  Company Number: US-009507513-1207USA002078

PATIENT
  Sex: Male

DRUGS (3)
  1. INVANZ [Suspect]
     Indication: DIABETIC FOOT INFECTION
     Dosage: UNK
     Route: 042
  2. INVANZ [Suspect]
     Dosage: 250 MG, QD
     Route: 042
  3. LINEZOLID [Concomitant]

REACTIONS (2)
  - Neurological symptom [Recovered/Resolved]
  - Abnormal behaviour [Recovered/Resolved]
